FAERS Safety Report 8344491-2 (Version None)
Quarter: 2012Q2

REPORT INFORMATION
  Report Type: 
  Country: None (occurrence: None)
  Receive Date: 20120508
  Receipt Date: 20120427
  Transmission Date: 20120825
  Serious: Yes (Other)
  Sender: FDA-Public Use
  Company Number: CA-JNJFOC-20120414256

PATIENT
  Sex: Female
  Weight: 56.1 kg

DRUGS (8)
  1. VITAMIN D [Concomitant]
     Route: 065
  2. VITAMIN B-12 [Concomitant]
     Route: 065
  3. VITMAIN E [Concomitant]
     Route: 065
  4. REMICADE [Suspect]
     Indication: CROHN'S DISEASE
     Route: 042
     Dates: start: 20071116
  5. BENADRYL [Concomitant]
     Route: 065
  6. VITAMIN B6 [Concomitant]
     Route: 065
  7. TYLENOL (CAPLET) [Concomitant]
     Route: 065
  8. HYDROCORTISONE [Concomitant]
     Route: 065

REACTIONS (3)
  - VERTIGO POSITIONAL [None]
  - PARAESTHESIA [None]
  - FATIGUE [None]
